FAERS Safety Report 4716813-2 (Version None)
Quarter: 2005Q3

REPORT INFORMATION
  Report Type: 
  Country: None (occurrence: None)
  Receive Date: 20050719
  Receipt Date: 20050713
  Transmission Date: 20060218
  Serious: Yes (Other)
  Sender: FDA-Public Use
  Company Number: 2005PK01225

PATIENT
  Age: 31937 Day
  Sex: Female
  Weight: 62 kg

DRUGS (1)
  1. SEROQUEL [Suspect]
     Indication: MENTAL DISORDER DUE TO A GENERAL MEDICAL CONDITION
     Route: 048
     Dates: start: 20050412, end: 20050531

REACTIONS (1)
  - TACHYARRHYTHMIA [None]
